FAERS Safety Report 9470481 (Version 1)
Quarter: 2013Q3

REPORT INFORMATION
  Report Type: Spontaneous
  Country: US (occurrence: None)
  Receive Date: 20130820
  Receipt Date: 20130820
  Transmission Date: 20140515
  Serious: Yes (Other)
  Sender: FDA-Public Use
  Company Number: None

PATIENT
  Age: 68 Year
  Sex: Female
  Weight: 78.47 kg

DRUGS (1)
  1. LOSARTAN POTASSIUM [Suspect]
     Indication: HYPERTENSION
     Route: 048
     Dates: start: 20130304, end: 20130325

REACTIONS (6)
  - Pyrexia [None]
  - Influenza [None]
  - Cough [None]
  - Nasal congestion [None]
  - Fatigue [None]
  - Sinusitis [None]
